FAERS Safety Report 17360548 (Version 1)
Quarter: 2020Q1

REPORT INFORMATION
  Report Type: Spontaneous
  Country: DK (occurrence: DK)
  Receive Date: 20200203
  Receipt Date: 20200203
  Transmission Date: 20200409
  Serious: Yes (Other)
  Sender: FDA-Public Use
  Company Number: NVSC2020DK021072

PATIENT
  Age: 27 Year
  Sex: Female
  Weight: 80 kg

DRUGS (2)
  1. LAMOTRIGIN STADA [Interacting]
     Active Substance: LAMOTRIGINE
     Indication: EPILEPSY
     Dosage: 200 MG, QD (STYRKE: 100 MG)
     Route: 048
     Dates: start: 20090701
  2. PARACETAMOL [Suspect]
     Active Substance: ACETAMINOPHEN
     Indication: INFLUENZA
     Dosage: 3000 MG, QD (STYRKE: 500 MG)
     Route: 048
     Dates: start: 20191007, end: 20191019

REACTIONS (2)
  - Inhibitory drug interaction [Recovered/Resolved]
  - Syncope [Recovered/Resolved]

NARRATIVE: CASE EVENT DATE: 20191007
